FAERS Safety Report 8921799 (Version 1)
Quarter: 2012Q4

REPORT INFORMATION
  Report Type: 
  Country: US (occurrence: US)
  Receive Date: 20121121
  Receipt Date: 20121121
  Transmission Date: 20130627
  Serious: Yes (Other)
  Sender: FDA-Public Use
  Company Number: US-MEDICIS-2012P1064996

PATIENT
  Age: 40 Year
  Sex: Female

DRUGS (1)
  1. MINOCYCLINE [Suspect]
     Indication: ACNE

REACTIONS (2)
  - Arteritis [Recovered/Resolved]
  - Post inflammatory pigmentation change [Unknown]
